FAERS Safety Report 5510282-0 (Version None)
Quarter: 2007Q4

REPORT INFORMATION
  Report Type: 
  Country: None (occurrence: None)
  Receive Date: 20071108
  Receipt Date: 20071031
  Transmission Date: 20080405
  Serious: Yes (Other)
  Sender: FDA-Public Use
  Company Number: US-ASTRAZENECA-2007UW18732

PATIENT
  Age: 71 Year
  Sex: Female
  Weight: 78.6 kg

DRUGS (6)
  1. SEROQUEL [Suspect]
     Indication: DEPRESSION
     Dosage: 25 MG - 200 MG
     Route: 048
     Dates: start: 20020101, end: 20060101
  2. SEROQUEL [Suspect]
     Indication: NERVOUSNESS
     Dosage: 25 MG - 200 MG
     Route: 048
     Dates: start: 20020101, end: 20060101
  3. ZYPREXA [Concomitant]
     Dosage: 2.5 MG - 5 MG
     Route: 048
  4. GEODON [Concomitant]
     Route: 048
     Dates: start: 20020101
  5. ZITIA [Concomitant]
     Route: 048
  6. VYTORIN [Concomitant]
     Route: 048

REACTIONS (2)
  - DIABETES MELLITUS [None]
  - RENAL DISORDER [None]
